FAERS Safety Report 6430853-7 (Version None)
Quarter: 2009Q4

REPORT INFORMATION
  Report Type: 
  Country: None (occurrence: None)
  Receive Date: 20091106
  Receipt Date: 20091103
  Transmission Date: 20100525
  Serious: Yes (Disabling, Other)
  Sender: FDA-Public Use
  Company Number: US-MERCK-0909USA01738

PATIENT
  Age: 66 Year
  Sex: Female
  Weight: 64 kg

DRUGS (2)
  1. COSOPT [Suspect]
     Route: 047
     Dates: start: 20070901
  2. COSOPT [Suspect]
     Route: 047

REACTIONS (2)
  - BLINDNESS UNILATERAL [None]
  - RETINAL TEAR [None]
